FAERS Safety Report 8600405-9 (Version None)
Quarter: 2012Q3

REPORT INFORMATION
  Report Type: 
  Country: None (occurrence: None)
  Receive Date: 20120817
  Receipt Date: 20120815
  Transmission Date: 20120928
  Serious: Yes (Other)
  Sender: FDA-Public Use
  Company Number: US-PFIZER INC-2012171269

PATIENT
  Age: 50 Year
  Sex: Female
  Weight: 72.562 kg

DRUGS (11)
  1. CHANTIX [Suspect]
     Indication: SMOKING CESSATION THERAPY
     Dosage: UNK
     Dates: start: 20060101
  2. SINGULAIR [Concomitant]
     Indication: HYPERSENSITIVITY
     Dosage: 10 MG, DAILY
  3. FOSAMAX [Concomitant]
     Indication: BONE DISORDER
     Dosage: 70 MG,WEEKLY
  4. LEVAQUIN [Concomitant]
     Indication: HYPERSENSITIVITY
     Dosage: UNK
  5. MORPHINE [Concomitant]
     Indication: BACK PAIN
  6. CHANTIX [Suspect]
     Dosage: 0.5 MG, DAILY
     Dates: start: 20120806, end: 20120801
  7. MORPHINE [Concomitant]
     Indication: SCIATICA
  8. PROGRAF [Concomitant]
     Indication: IMMUNOSUPPRESSANT DRUG THERAPY
     Dosage: 0.5 MG, 2X/DAY
     Route: 048
  9. ZEMPLAR [Concomitant]
     Indication: VITAMIN SUPPLEMENTATION
     Dosage: 1 UG, DAILY
  10. CHANTIX [Suspect]
     Dosage: 0.5 MG, 2X/DAY
     Dates: start: 20120801, end: 20120811
  11. MORPHINE [Concomitant]
     Indication: FIBROMYALGIA
     Dosage: 120 MG, 3X/DAY

REACTIONS (2)
  - MALAISE [None]
  - MANIA [None]
